FAERS Safety Report 4318231-8 (Version None)
Quarter: 2004Q1

REPORT INFORMATION
  Report Type: 
  Country: None (occurrence: None)
  Receive Date: 20040315
  Receipt Date: 20040301
  Transmission Date: 20041129
  Serious: Yes (Life-Threatening)
  Sender: FDA-Public Use
  Company Number: 02100-JPN-04-0044

PATIENT
  Age: 67 Year
  Sex: Female

DRUGS (3)
  1. CILOSTAZOL [Suspect]
     Indication: CEREBRAL ARTERY EMBOLISM
     Dosage: 200 MG ORAL
     Route: 048
     Dates: start: 20040129, end: 20040301
  2. SODIUM CHLORIDE INJ [Concomitant]
  3. WARFARIN POTASSIUM [Concomitant]

REACTIONS (1)
  - CEREBRAL ARTERY EMBOLISM [None]
